FAERS Safety Report 6230636-7 (Version None)
Quarter: 2009Q2

REPORT INFORMATION
  Report Type: 
  Country: None (occurrence: None)
  Receive Date: 20090615
  Receipt Date: 20090504
  Transmission Date: 20091009
  Serious: No
  Sender: FDA-Public Use
  Company Number: US-ABBOTT-09P-163-0571581-00

PATIENT
  Sex: Male
  Weight: 71.278 kg

DRUGS (7)
  1. TRILIPIX [Suspect]
     Indication: BLOOD TRIGLYCERIDES INCREASED
     Dates: start: 20090130, end: 20090301
  2. TRILIPIX [Suspect]
     Dates: start: 20090301
  3. ASPIRIN [Concomitant]
     Indication: DRUG USE FOR UNKNOWN INDICATION
  4. FOLBIC [Concomitant]
     Indication: RENAL DISORDER
  5. LOVASA [Concomitant]
     Indication: BLOOD CHOLESTEROL INCREASED
  6. EXFORGE [Concomitant]
     Indication: HYPERTENSION
  7. CARVIDOL [Concomitant]
     Indication: HYPERTENSION

REACTIONS (2)
  - BLOOD CREATININE INCREASED [None]
  - PROTEIN URINE PRESENT [None]
